FAERS Safety Report 13142120 (Version 2)
Quarter: 2017Q1

REPORT INFORMATION
  Report Type: Spontaneous
  Country: SE (occurrence: SE)
  Receive Date: 20170123
  Receipt Date: 20170127
  Transmission Date: 20170428
  Serious: Yes (Other)
  Sender: FDA-Public Use
  Company Number: SE-GILEAD-2017-0254301

PATIENT
  Age: 50 Year
  Sex: Male

DRUGS (4)
  1. PENTASA [Concomitant]
     Active Substance: MESALAMINE
     Route: 065
  2. HARVONI [Suspect]
     Active Substance: LEDIPASVIR\SOFOSBUVIR
     Indication: CHRONIC HEPATITIS C
     Dosage: 1 DF, QD
     Route: 048
     Dates: start: 20160901, end: 20161124
  3. ORUDIS [Concomitant]
     Active Substance: KETOPROFEN
     Route: 065
  4. MODERIBA [Concomitant]
     Active Substance: RIBAVIRIN
     Route: 065
     Dates: start: 20160901, end: 20161124

REACTIONS (2)
  - Personality change [Recovered/Resolved]
  - Dermatitis acneiform [Recovered/Resolved]

NARRATIVE: CASE EVENT DATE: 2016
